FAERS Safety Report 8439469-4 (Version None)
Quarter: 2012Q2

REPORT INFORMATION
  Report Type: 
  Country: None (occurrence: None)
  Receive Date: 20120615
  Receipt Date: 20120605
  Transmission Date: 20120825
  Serious: Yes (Other)
  Sender: FDA-Public Use
  Company Number: US-JNJFOC-20120603598

PATIENT
  Sex: Female
  Weight: 71.22 kg

DRUGS (8)
  1. REMICADE [Suspect]
     Route: 042
     Dates: start: 20090101
  2. LORAZEPAM [Concomitant]
     Indication: SLEEP DISORDER
     Route: 048
  3. REMICADE [Suspect]
     Route: 042
     Dates: start: 20090101
  4. VITAMIN B-12 [Concomitant]
     Indication: VITAMIN B12 DEFICIENCY
     Route: 058
  5. REMICADE [Suspect]
     Indication: PSORIATIC ARTHROPATHY
     Route: 042
     Dates: start: 20120101
  6. HYDROXYCHLOROQUINE SULFATE [Concomitant]
     Indication: ARTHRITIS
     Route: 048
  7. REMICADE [Suspect]
     Indication: PSORIASIS
     Route: 042
     Dates: start: 20120101
  8. SIMVASTATIN [Concomitant]
     Indication: HYPERTENSION
     Route: 048

REACTIONS (2)
  - HYPOTHYROIDISM [None]
  - THERAPEUTIC RESPONSE DECREASED [None]
